FAERS Safety Report 6846107-0 (Version None)
Quarter: 2010Q3

REPORT INFORMATION
  Report Type: 
  Country: None (occurrence: None)
  Receive Date: 20100715
  Receipt Date: 20071014
  Transmission Date: 20110219
  Serious: No
  Sender: FDA-Public Use
  Company Number: US-PFIZER INC-2007073584

PATIENT
  Sex: Female

DRUGS (3)
  1. CHANTIX [Suspect]
     Indication: SMOKING CESSATION THERAPY
     Route: 048
     Dates: start: 20070830
  2. INDERAL [Concomitant]
     Indication: BLOOD PRESSURE ABNORMAL
     Route: 048
  3. LOVASTATIN [Concomitant]
     Indication: BLOOD CHOLESTEROL ABNORMAL
     Route: 048

REACTIONS (5)
  - AMNESIA [None]
  - ANXIETY [None]
  - INSOMNIA [None]
  - NAUSEA [None]
  - NERVOUSNESS [None]
